FAERS Safety Report 9424169 (Version 2)
Quarter: 2013Q3

REPORT INFORMATION
  Report Type: Spontaneous
  Country: AU (occurrence: AU)
  Receive Date: 20130729
  Receipt Date: 20130827
  Transmission Date: 20140515
  Serious: Yes (Hospitalization)
  Sender: FDA-Public Use
  Company Number: AU-B.I. PHARMACEUTICALS,INC./RIDGEFIELD-2013-AU-00888AU

PATIENT
  Age: 67 Year
  Sex: Male
  Weight: 102 kg

DRUGS (6)
  1. PRADAXA [Suspect]
     Indication: ATRIAL FIBRILLATION
     Dosage: 300 MG
  2. DIGOXIN [Concomitant]
  3. ZANIDIP [Concomitant]
  4. ATACAND [Concomitant]
  5. LIPEX [Concomitant]
  6. PARIET [Concomitant]

REACTIONS (1)
  - Acute myocardial infarction [Recovered/Resolved]
